FAERS Safety Report 8211598-X (Version None)
Quarter: 2012Q1

REPORT INFORMATION
  Report Type: 
  Country: None (occurrence: None)
  Receive Date: 20120315
  Receipt Date: 20120215
  Transmission Date: 20120608
  Serious: Yes (Death)
  Sender: FDA-Public Use
  Company Number: FR-EISAI INC-E3810-05277-SPO-FR

PATIENT
  Sex: Female

DRUGS (10)
  1. RABEPRAZOLE SODIUM [Suspect]
     Route: 048
  2. CORDARONE [Suspect]
     Route: 048
  3. LEVACT [Suspect]
     Dosage: UNKNOWN
     Route: 042
     Dates: start: 20100105, end: 20100519
  4. STABLON [Suspect]
     Route: 048
  5. RAMIPRIL [Suspect]
     Route: 048
  6. OMEPRAZOLE [Suspect]
     Route: 048
  7. FOLIC ACID [Suspect]
     Route: 048
  8. MABTHERA [Suspect]
     Dosage: UNKNOWN
     Route: 042
     Dates: start: 20050101, end: 20100501
  9. GRANOCYTE [Suspect]
     Route: 030
     Dates: start: 20110101
  10. PREVISCAN [Suspect]
     Route: 048

REACTIONS (1)
  - GUILLAIN-BARRE SYNDROME [None]
